FAERS Safety Report 9613207 (Version 1)
Quarter: 2013Q4

REPORT INFORMATION
  Report Type: Spontaneous
  Country: DE (occurrence: DE)
  Receive Date: 20131010
  Receipt Date: 20131010
  Transmission Date: 20140711
  Serious: Yes (Congenital Anomaly)
  Sender: FDA-Public Use
  Company Number: DE-TEVA-435497GER

PATIENT
  Age: 1 Day
  Sex: Male

DRUGS (3)
  1. CITALOPRAM [Suspect]
     Route: 064
  2. PARACETAMOL [Concomitant]
     Route: 064
  3. FEMIBION [Concomitant]
     Route: 064

REACTIONS (2)
  - Choanal atresia [Recovered/Resolved with Sequelae]
  - Hydrocele [Recovering/Resolving]
